FAERS Safety Report 8103301-9 (Version None)
Quarter: 2012Q1

REPORT INFORMATION
  Report Type: 
  Country: None (occurrence: None)
  Receive Date: 20120201
  Receipt Date: 20120123
  Transmission Date: 20120608
  Serious: Yes (Life-Threatening, Hospitalization, Other)
  Sender: FDA-Public Use
  Company Number: JP-ABBOTT-11P-087-0883505-00

PATIENT
  Sex: Female
  Weight: 39.7 kg

DRUGS (16)
  1. CLARITHROMYCIN [Suspect]
     Indication: PRODUCTIVE COUGH
  2. CANDESARTAN CILEXETIL [Concomitant]
     Indication: PRODUCT USED FOR UNKNOWN INDICATION
  3. EXPECTORANT [Concomitant]
     Indication: PRODUCT USED FOR UNKNOWN INDICATION
  4. STOMACH MEDICINE [Concomitant]
     Indication: PRODUCT USED FOR UNKNOWN INDICATION
  5. ERYTHROMYCIN ETHYLSUCCINATE [Concomitant]
     Indication: PRODUCTIVE COUGH
     Dates: start: 20110908, end: 20111114
  6. MAGNESIUM OXIDE [Concomitant]
     Indication: CONSTIPATION
     Route: 048
     Dates: start: 20111114, end: 20111212
  7. CLARITHROMYCIN [Suspect]
     Indication: BRONCHIECTASIS
     Route: 048
     Dates: start: 20111114, end: 20111212
  8. TULOBUTEROL [Concomitant]
     Indication: DYSPNOEA
     Route: 062
     Dates: start: 20111031
  9. LANSOPRAZOLE [Concomitant]
     Indication: GASTRITIS
     Route: 048
     Dates: start: 20090615
  10. FERROUS CITRATE [Concomitant]
     Indication: ANAEMIA
     Route: 048
     Dates: start: 20090615
  11. BROMHEXINE HYDROCHLORIDE [Concomitant]
     Indication: PRODUCTIVE COUGH
     Route: 048
     Dates: start: 20090615
  12. VITAMIN B COMPLEX CAP [Concomitant]
     Indication: PRODUCT USED FOR UNKNOWN INDICATION
     Route: 048
     Dates: start: 20090615
  13. HUSCODE [Concomitant]
     Indication: COUGH
     Route: 048
     Dates: start: 20111107
  14. AMBROXOL HYDROCHLORIDE [Concomitant]
     Indication: PRODUCTIVE COUGH
     Route: 048
     Dates: start: 20090615
  15. MANIDIPINE HYDROCHLORIDE [Concomitant]
     Indication: HYPERTENSION
     Route: 048
     Dates: start: 20090615
  16. DEXTROMETHORPHAN HYDROBROMIDE HYDRATE [Concomitant]
     Indication: COUGH
     Route: 048
     Dates: start: 20090615

REACTIONS (4)
  - ELECTROCARDIOGRAM QT PROLONGED [None]
  - SYNCOPE [None]
  - TORSADE DE POINTES [None]
  - LOSS OF CONSCIOUSNESS [None]
